FAERS Safety Report 15619979 (Version 1)
Quarter: 2018Q4

REPORT INFORMATION
  Report Type: Report from Study
  Country: None (occurrence: DE)
  Receive Date: 20181115
  Receipt Date: 20181115
  Transmission Date: 20190205
  Serious: Yes (Hospitalization)
  Sender: FDA-Public Use
  Company Number: DE-ABBVIE-18S-062-2554230-00

PATIENT
  Sex: Male

DRUGS (3)
  1. IMMUNOGLOBULINS [Concomitant]
     Active Substance: IMMUNE GLOBULIN NOS
     Indication: PRODUCT USED FOR UNKNOWN INDICATION
     Route: 065
  2. DUODOPA [Suspect]
     Active Substance: CARBIDOPA\LEVODOPA
     Dosage: STILL IN RETITRATION PHASE
     Route: 050
     Dates: start: 201811
  3. DUODOPA [Suspect]
     Active Substance: CARBIDOPA\LEVODOPA
     Indication: PARKINSON^S DISEASE
     Dosage: MD: 6.1ML, CRD: 9.2ML/H, CRN: 6.5ML/H, ED: 2.8ML
     Route: 050
     Dates: start: 20061209, end: 201811

REACTIONS (1)
  - Mobility decreased [Recovering/Resolving]

NARRATIVE: CASE EVENT DATE: 2018
